FAERS Safety Report 24657089 (Version 1)
Quarter: 2024Q4

REPORT INFORMATION
  Report Type: Spontaneous
  Country: ES (occurrence: ES)
  Receive Date: 20241125
  Receipt Date: 20241125
  Transmission Date: 20250115
  Serious: Yes (Other)
  Sender: CELLTRION
  Company Number: ES-SA-2024SA148508

PATIENT

DRUGS (4)
  1. RITUXIMAB [Suspect]
     Active Substance: RITUXIMAB
     Indication: Thrombotic thrombocytopenic purpura
     Route: 065
  2. CAPLACIZUMAB [Suspect]
     Active Substance: CAPLACIZUMAB
     Indication: Thrombotic thrombocytopenic purpura
  3. METHYLPREDNISOLONE [Suspect]
     Active Substance: METHYLPREDNISOLONE
     Indication: Thrombotic thrombocytopenic purpura
     Route: 065
  4. HUMAN PLASMA [Concomitant]
     Active Substance: HUMAN PLASMA
     Route: 065

REACTIONS (4)
  - Myoclonus [Unknown]
  - Seizure [Unknown]
  - Nervous system disorder [Unknown]
  - Intentional product use issue [Unknown]
